FAERS Safety Report 25951141 (Version 2)
Quarter: 2025Q4

REPORT INFORMATION
  Report Type: Spontaneous
  Country: AU (occurrence: AU)
  Receive Date: 20251023
  Receipt Date: 20251121
  Transmission Date: 20260118
  Serious: Yes (Death, Other)
  Sender: AKESO BIOPHARMA CO., LTD.
  Company Number: AU-Akeso Biopharma Co., Ltd.-2187113

PATIENT
  Age: 69 Year
  Sex: Male

DRUGS (2)
  1. PENPULIMAB-KCQX [Suspect]
     Active Substance: PENPULIMAB-KCQX
     Indication: Prostate cancer
  2. ZEPZELCA [Concomitant]
     Active Substance: LURBINECTEDIN

REACTIONS (1)
  - Death [Fatal]
